FAERS Safety Report 6946791-7 (Version None)
Quarter: 2010Q3

REPORT INFORMATION
  Report Type: 
  Country: None (occurrence: None)
  Receive Date: 20100827
  Receipt Date: 20090817
  Transmission Date: 20110219
  Serious: No
  Sender: FDA-Public Use
  Company Number: US-ABBOTT-09P-163-0591891-00

PATIENT
  Sex: Male
  Weight: 97.61 kg

DRUGS (4)
  1. NIASPAN [Suspect]
     Indication: BLOOD CHOLESTEROL
     Dates: start: 20090401, end: 20090701
  2. NIASPAN [Suspect]
     Dates: start: 20090701
  3. ASPIRIN [Concomitant]
     Indication: FLUSHING
     Dates: end: 20090501
  4. ASPIRIN [Concomitant]
     Dates: start: 20090501

REACTIONS (1)
  - FLUSHING [None]
